FAERS Safety Report 21981868 (Version 2)
Quarter: 2023Q2

REPORT INFORMATION
  Report Type: Spontaneous
  Country: US (occurrence: None)
  Receive Date: 20230212
  Receipt Date: 20230414
  Transmission Date: 20230722
  Serious: No
  Sender: FDA-Public Use
  Company Number: 2023A026632

PATIENT
  Age: 76 Year
  Sex: Male
  Weight: 77.1 kg

DRUGS (3)
  1. BREZTRI [Suspect]
     Active Substance: BUDESONIDE\FORMOTEROL\GLYCOPYRROLATE
     Indication: Bronchitis chronic
     Dosage: 160/9/4.5 UG, 2 PUFFS, 2 TIMES A DAY
     Route: 055
     Dates: start: 2022
  2. BREZTRI [Suspect]
     Active Substance: BUDESONIDE\FORMOTEROL\GLYCOPYRROLATE
     Indication: Chronic obstructive pulmonary disease
     Dosage: 160/9/4.5 UG, 2 PUFFS, 2 TIMES A DAY
     Route: 055
     Dates: start: 2022
  3. SYMBICORT [Suspect]
     Active Substance: BUDESONIDE\FORMOTEROL FUMARATE DIHYDRATE
     Indication: Bronchitis chronic
     Dosage: UNKNOWN DOSE AND FREQUENCY UNKNOWN
     Route: 055

REACTIONS (12)
  - Lung disorder [Not Recovered/Not Resolved]
  - Pulmonary congestion [Not Recovered/Not Resolved]
  - Productive cough [Not Recovered/Not Resolved]
  - Oxygen saturation decreased [Unknown]
  - Emphysema [Not Recovered/Not Resolved]
  - Gait disturbance [Not Recovered/Not Resolved]
  - Weight decreased [Unknown]
  - Weight increased [Unknown]
  - Scoliosis [Not Recovered/Not Resolved]
  - Incorrect dose administered [Unknown]
  - Device use issue [Unknown]
  - Wrong technique in device usage process [Unknown]

NARRATIVE: CASE EVENT DATE: 20220101
